FAERS Safety Report 25705607 (Version 1)
Quarter: 2025Q3

REPORT INFORMATION
  Report Type: Spontaneous
  Country: US (occurrence: US)
  Receive Date: 20250820
  Receipt Date: 20250820
  Transmission Date: 20251020
  Serious: Yes (Other)
  Sender: LIQUIDIA TECHNOLOGIES
  Company Number: US-LIQUIDIA TECHNOLOGIES, INC.-LIQ-2025-000010

PATIENT

DRUGS (13)
  1. YUTREPIA [Suspect]
     Active Substance: TREPROSTINIL SODIUM
     Indication: Pulmonary arterial hypertension
     Dosage: 26.5 MICROGRAM, QID (INHALE 2 BREATHS (26.5 MCG) PER CAPSULE FOUR TIMES)
     Route: 055
     Dates: start: 202506
  2. YUTREPIA [Suspect]
     Active Substance: TREPROSTINIL SODIUM
     Dosage: 26.5 MICROGRAM, QID (INHALE 2 BREATHS (26.5 MCG) PER CAPSULE FOUR TIMES)
     Route: 055
     Dates: start: 202506
  3. YUTREPIA [Suspect]
     Active Substance: TREPROSTINIL SODIUM
     Indication: Pulmonary arterial hypertension
     Dosage: 79.5 MICROGRAM, QID (INHALE 2 BREATHS (79.5MCG) PER CAPSULE)
     Route: 055
     Dates: start: 2025
  4. YUTREPIA [Suspect]
     Active Substance: TREPROSTINIL SODIUM
     Indication: Pulmonary arterial hypertension
     Dosage: 53 MICROGRAM, QID (INHALE 2 BREATHS PER CAPSULE)
     Route: 055
     Dates: start: 202506
  5. OPSUMIT [Suspect]
     Active Substance: MACITENTAN
     Route: 065
  6. DILTIAZEM [Concomitant]
     Active Substance: DILTIAZEM
     Indication: Product used for unknown indication
     Route: 065
  7. POTASSIUM CHLORIDE [Concomitant]
     Active Substance: POTASSIUM CHLORIDE
     Indication: Product used for unknown indication
     Route: 065
  8. OXYGEN [Concomitant]
     Active Substance: OXYGEN
     Indication: Product used for unknown indication
     Route: 065
  9. CALTRATE WITH VITAMIN D [Concomitant]
     Active Substance: CALCIUM CARBONATE\CHOLECALCIFEROL
     Indication: Product used for unknown indication
     Route: 065
  10. FUROSEMIDE [Concomitant]
     Active Substance: FUROSEMIDE
     Indication: Product used for unknown indication
     Route: 065
  11. ATORVASTATIN [Concomitant]
     Active Substance: ATORVASTATIN
     Indication: Product used for unknown indication
     Route: 065
  12. ASPIRIN [Concomitant]
     Active Substance: ASPIRIN
     Indication: Product used for unknown indication
     Route: 065
  13. PRASUGREL [Concomitant]
     Active Substance: PRASUGREL
     Indication: Product used for unknown indication
     Route: 065

REACTIONS (9)
  - Optic disc haemorrhage [Unknown]
  - Ocular hypertension [Unknown]
  - Scleroderma [Unknown]
  - Product physical issue [Unknown]
  - Oxygen saturation decreased [Unknown]
  - Balance disorder [Unknown]
  - Hypotension [Unknown]
  - Dyspnoea [Unknown]
  - Dizziness [Unknown]

NARRATIVE: CASE EVENT DATE: 20250101
